FAERS Safety Report 5006205-3 (Version None)
Quarter: 2006Q1

REPORT INFORMATION
  Report Type: 
  Country: None (occurrence: None)
  Receive Date: 20060327
  Receipt Date: 20060221
  Transmission Date: 20060701
  Serious: No
  Sender: FDA-Public Use
  Company Number: 222375

PATIENT
  Age: 67 Year
  Sex: Male
  Weight: 79.4 kg

DRUGS (1)
  1. AVASTIN [Suspect]
     Indication: LUNG NEOPLASM MALIGNANT
     Dosage: 1200 , Q3W, INTRAVENOUS
     Route: 042
     Dates: start: 20060216

REACTIONS (2)
  - BLISTER [None]
  - EXTRAVASATION [None]
